FAERS Safety Report 24682339 (Version 1)
Quarter: 2024Q4

REPORT INFORMATION
  Report Type: Spontaneous
  Country: US (occurrence: US)
  Receive Date: 20241130
  Receipt Date: 20241130
  Transmission Date: 20250115
  Serious: No
  Sender: ABBVIE
  Company Number: US-TEVA-VS-3262652

PATIENT
  Age: 35 Year
  Sex: Female

DRUGS (1)
  1. TESTOSTERONE [Suspect]
     Active Substance: TESTOSTERONE
     Indication: Hormone level abnormal
     Dosage: 1/5TH OF PACKET DAILY
     Route: 061

REACTIONS (1)
  - Intercepted product prescribing error [Unknown]
